FAERS Safety Report 5127077-2 (Version None)
Quarter: 2006Q4

REPORT INFORMATION
  Report Type: 
  Country: None (occurrence: None)
  Receive Date: 20061013
  Receipt Date: 20060713
  Transmission Date: 20070319
  Serious: Yes (Hospitalization, Other)
  Sender: FDA-Public Use
  Company Number: US-BRISTOL-MYERS SQUIBB COMPANY-13448329

PATIENT
  Sex: Female

DRUGS (8)
  1. TAXOL [Suspect]
     Indication: BREAST CANCER
     Dates: start: 20030101, end: 20030101
  2. CYTOXAN [Suspect]
     Indication: BREAST CANCER
     Route: 042
     Dates: start: 20031007, end: 20031007
  3. ADRIAMYCIN PFS [Suspect]
     Indication: BREAST CANCER
     Route: 042
     Dates: start: 20031007, end: 20031007
  4. NEULASTA [Concomitant]
  5. DICLOXACILLIN [Concomitant]
  6. LORAZEPAM [Concomitant]
  7. LISINOPRIL AND HYDROCHLOROTHIAZIDE [Concomitant]
     Indication: HYPERTENSION
  8. NORVASC [Concomitant]
     Indication: HYPERTENSION

REACTIONS (12)
  - ANAEMIA [None]
  - BREAST ABSCESS [None]
  - CHEST PAIN [None]
  - FEBRILE NEUTROPENIA [None]
  - HYPOAESTHESIA [None]
  - HYPOAESTHESIA FACIAL [None]
  - SEBORRHOEIC DERMATITIS [None]
  - STOMATITIS [None]
  - THROMBOCYTOPENIA [None]
  - TOOTH LOSS [None]
  - URTICARIA [None]
  - VITILIGO [None]
